FAERS Safety Report 13247415 (Version 1)
Quarter: 2017Q1

REPORT INFORMATION
  Report Type: Report from Study
  Country: PH (occurrence: PH)
  Receive Date: 20170217
  Receipt Date: 20170217
  Transmission Date: 20170428
  Serious: Yes (Death, Hospitalization, Other)
  Sender: FDA-Public Use
  Company Number: PHHY2017PH014792

PATIENT
  Age: 47 Year
  Sex: Female

DRUGS (1)
  1. TASIGNA [Suspect]
     Active Substance: NILOTINIB
     Indication: PRODUCT USED FOR UNKNOWN INDICATION
     Dosage: 200 MG, QID
     Route: 048

REACTIONS (11)
  - Disorientation [Unknown]
  - Febrile neutropenia [Unknown]
  - Restlessness [Unknown]
  - Pancytopenia [Unknown]
  - Pyrexia [Unknown]
  - Depressed level of consciousness [Unknown]
  - Pallor [Unknown]
  - Oedema peripheral [Fatal]
  - Asthenia [Unknown]
  - Cardiac arrest [Fatal]
  - Anogenital warts [Unknown]

NARRATIVE: CASE EVENT DATE: 20170119
